FAERS Safety Report 7817556-9 (Version None)
Quarter: 2011Q4

REPORT INFORMATION
  Report Type: 
  Country: None (occurrence: None)
  Receive Date: 20111017
  Receipt Date: 20111005
  Transmission Date: 20120403
  Serious: Yes (Hospitalization, Other)
  Sender: FDA-Public Use
  Company Number: SA-ALLERGAN-1113376US

PATIENT
  Age: 28 Year
  Sex: Female

DRUGS (5)
  1. PREDNISOLONE [Suspect]
     Indication: EYE PAIN
     Dosage: UNK
     Route: 047
  2. PREDNISOLONE [Suspect]
     Indication: OCULAR HYPERAEMIA
  3. ANTIVIRAL MEDICATION [Concomitant]
     Indication: EYE PAIN
  4. ANTIBACTERIAL [Suspect]
     Indication: EYE PAIN
  5. CONTACT LENS SOLUTION [Concomitant]

REACTIONS (3)
  - EYE INFECTION BACTERIAL [None]
  - CORNEAL EPITHELIUM DEFECT [None]
  - ACANTHAMOEBA KERATITIS [None]
